FAERS Safety Report 6540085-X (Version None)
Quarter: 2010Q1

REPORT INFORMATION
  Report Type: 
  Country: None (occurrence: None)
  Receive Date: 20100115
  Receipt Date: 20100106
  Transmission Date: 20100710
  Serious: Yes (Hospitalization)
  Sender: FDA-Public Use
  Company Number: US-GENENTECH-295963

PATIENT
  Sex: Male
  Weight: 47.4 kg

DRUGS (5)
  1. SOMATROPIN [Suspect]
     Indication: SEPTO-OPTIC DYSPLASIA
     Dosage: 1.4 MG, 7/WEEK
     Dates: start: 20080312
  2. DDAVP [Concomitant]
     Indication: DRUG USE FOR UNKNOWN INDICATION
     Dosage: 1.0 MG, BID
     Route: 048
  3. CORTEF [Concomitant]
     Indication: DRUG USE FOR UNKNOWN INDICATION
     Dosage: 5.0 MG, QID
     Route: 048
  4. LEVOXYL [Concomitant]
     Indication: DRUG USE FOR UNKNOWN INDICATION
     Dosage: 75 A?G, QD
     Route: 048
  5. PROZAC [Concomitant]
     Indication: DRUG USE FOR UNKNOWN INDICATION
     Dosage: 20 MG, QHS
     Dates: start: 20090801, end: 20091210

REACTIONS (1)
  - HYPOGLYCAEMIA [None]
